FAERS Safety Report 23807637 (Version 1)
Quarter: 2024Q2

REPORT INFORMATION
  Report Type: Spontaneous
  Country: US (occurrence: US)
  Receive Date: 20240502
  Receipt Date: 20240502
  Transmission Date: 20240716
  Serious: Yes (Hospitalization, Other)
  Sender: FDA-Public Use
  Company Number: US-AUROBINDO-AUR-APL-2024-020107

PATIENT
  Age: 62 Year
  Sex: Female

DRUGS (1)
  1. PHENTERMINE [Suspect]
     Active Substance: PHENTERMINE
     Indication: Weight decreased
     Dosage: UNK
     Route: 065

REACTIONS (2)
  - Coronary artery dissection [Unknown]
  - Acute myocardial infarction [Unknown]
